FAERS Safety Report 23786368 (Version 1)
Quarter: 2024Q2

REPORT INFORMATION
  Report Type: Spontaneous
  Country: US (occurrence: US)
  Receive Date: 20240426
  Receipt Date: 20240426
  Transmission Date: 20240716
  Serious: Yes (Hospitalization)
  Sender: FDA-Public Use
  Company Number: US-JNJFOC-20240458190

PATIENT
  Sex: Male

DRUGS (1)
  1. UPTRAVI [Suspect]
     Active Substance: SELEXIPAG
     Indication: Pulmonary arterial hypertension
     Dosage: STARTED ON 200MG WHEN IN THE HOSPITAL
     Route: 048

REACTIONS (3)
  - Dependence on oxygen therapy [Not Recovered/Not Resolved]
  - Myalgia [Unknown]
  - Headache [Unknown]
